FAERS Safety Report 13160115 (Version 1)
Quarter: 2017Q1

REPORT INFORMATION
  Report Type: Spontaneous
  Country: DE (occurrence: DE)
  Receive Date: 20170127
  Receipt Date: 20170127
  Transmission Date: 20170428
  Serious: Yes (Congenital Anomaly)
  Sender: FDA-Public Use
  Company Number: GXKR2017DE000831

PATIENT

DRUGS (3)
  1. ATOSIL [Suspect]
     Active Substance: PROMETHAZINE HYDROCHLORIDE
     Indication: POST-TRAUMATIC STRESS DISORDER
     Dosage: 25 [MG/D ]/ SOMETIMES MORE
     Route: 064
     Dates: start: 20151202, end: 20160705
  2. VENLAFAXINE [Suspect]
     Active Substance: VENLAFAXINE HYDROCHLORIDE
     Indication: POST-TRAUMATIC STRESS DISORDER
     Dosage: 150 [MG/D ]
     Route: 064
     Dates: start: 20151202, end: 20160614
  3. FOLSAEURE [Concomitant]
     Active Substance: FOLIC ACID
     Indication: PROPHYLAXIS OF NEURAL TUBE DEFECT
     Dosage: UNK UKN, UNK
     Route: 064
     Dates: start: 20160209, end: 20160919

REACTIONS (4)
  - Atrial septal defect [Unknown]
  - Ventricular septal defect [Unknown]
  - Patent ductus arteriosus [Recovering/Resolving]
  - Congenital diaphragmatic hernia [Recovered/Resolved with Sequelae]

NARRATIVE: CASE EVENT DATE: 20160920
